FAERS Safety Report 6238845-8 (Version None)
Quarter: 2009Q2

REPORT INFORMATION
  Report Type: 
  Country: None (occurrence: None)
  Receive Date: 20090617
  Receipt Date: 20090617
  Transmission Date: 20091009
  Serious: Yes (Death)
  Sender: FDA-Public Use
  Company Number: None

PATIENT
  Age: 32 Year
  Sex: Female
  Weight: 108 kg

DRUGS (1)
  1. DILAUDID [Suspect]
     Indication: HEADACHE
     Dosage: DILAUDID 2 MGS Q 2 TO 3 HOURS IV BOLUS
     Route: 040
     Dates: start: 20090521, end: 20090522

REACTIONS (2)
  - PROCEDURAL COMPLICATION [None]
  - UNRESPONSIVE TO STIMULI [None]
